FAERS Safety Report 12147012 (Version 1)
Quarter: 2016Q1

REPORT INFORMATION
  Report Type: Spontaneous
  Country: US (occurrence: US)
  Receive Date: 20160304
  Receipt Date: 20160304
  Transmission Date: 20160526
  Serious: No
  Sender: FDA-Public Use
  Company Number: US-INDIVIOR LIMITED-RB-079133-2015

PATIENT
  Age: 38 Year
  Sex: Female

DRUGS (3)
  1. SUBOXONE [Suspect]
     Active Substance: BUPRENORPHINE HYDROCHLORIDE\NALOXONE HYDROCHLORIDE
     Indication: DRUG DEPENDENCE
     Dosage: 16 MG AND VARIOUS DOSES MULTIPLE TIMES A DAY
     Route: 060
     Dates: start: 2013, end: 201408
  2. SUBOXONE [Suspect]
     Active Substance: BUPRENORPHINE HYDROCHLORIDE\NALOXONE HYDROCHLORIDE
     Dosage: 16 MG, DAILY FOR ABOUT 6 YEARS
     Route: 060
     Dates: start: 2007, end: 2013
  3. SUBOXONE [Suspect]
     Active Substance: BUPRENORPHINE HYDROCHLORIDE\NALOXONE HYDROCHLORIDE
     Indication: DRUG DEPENDENCE
     Dosage: 32 MG, DAILY FOR ABOUT 2 WEEKS
     Route: 060
     Dates: start: 2007, end: 2007

REACTIONS (10)
  - Alopecia [Not Recovered/Not Resolved]
  - Hypersomnia [Unknown]
  - Heart rate decreased [Not Recovered/Not Resolved]
  - Swelling [Not Recovered/Not Resolved]
  - Somnolence [Not Recovered/Not Resolved]
  - Postpartum hypopituitarism [Unknown]
  - Hormone level abnormal [Not Recovered/Not Resolved]
  - Product preparation error [Recovered/Resolved]
  - Intentional product misuse [Recovered/Resolved]
  - Hypotension [Not Recovered/Not Resolved]

NARRATIVE: CASE EVENT DATE: 2007
